FAERS Safety Report 18517241 (Version 1)
Quarter: 2020Q4

REPORT INFORMATION
  Report Type: Spontaneous
  Country: CA (occurrence: CA)
  Receive Date: 20201118
  Receipt Date: 20201118
  Transmission Date: 20210114
  Serious: Yes (Death, Other)
  Sender: FDA-Public Use
  Company Number: CA-GLAXOSMITHKLINE-CA2020GSK228109

PATIENT
  Sex: Female

DRUGS (1)
  1. AVANDIA [Suspect]
     Active Substance: ROSIGLITAZONE MALEATE
     Indication: DIABETES MELLITUS
     Dosage: 04 MG, QD
     Route: 048

REACTIONS (6)
  - Death [Fatal]
  - Chest discomfort [Unknown]
  - Angina unstable [Unknown]
  - Stent placement [Unknown]
  - Coronary artery disease [Unknown]
  - Acute myocardial infarction [Unknown]
